FAERS Safety Report 22174812 (Version 3)
Quarter: 2023Q2

REPORT INFORMATION
  Report Type: Spontaneous
  Country: FR (occurrence: FR)
  Receive Date: 20230405
  Receipt Date: 20230509
  Transmission Date: 20230722
  Serious: Yes (Other)
  Sender: FDA-Public Use
  Company Number: None

PATIENT
  Age: 68 Year
  Sex: Female
  Weight: 0 kg

DRUGS (18)
  1. IMATINIB [Suspect]
     Active Substance: IMATINIB
     Indication: Gastrointestinal stromal tumour
     Route: 065
     Dates: start: 202104
  2. IMATINIB [Suspect]
     Active Substance: IMATINIB
     Indication: Lung adenocarcinoma
     Route: 065
     Dates: end: 202110
  3. IMATINIB [Suspect]
     Active Substance: IMATINIB
     Dates: start: 202206
  4. IMATINIB [Suspect]
     Active Substance: IMATINIB
     Route: 065
     Dates: end: 202009
  5. IMATINIB [Suspect]
     Active Substance: IMATINIB
     Route: 065
     Dates: start: 202203, end: 202206
  6. IMATINIB [Suspect]
     Active Substance: IMATINIB
     Route: 065
     Dates: start: 202201, end: 202203
  7. IMATINIB [Suspect]
     Active Substance: IMATINIB
     Route: 065
     Dates: end: 200804
  8. IMATINIB [Suspect]
     Active Substance: IMATINIB
     Route: 065
  9. CRIZOTINIB [Suspect]
     Active Substance: CRIZOTINIB
     Indication: Drug resistance
     Route: 065
     Dates: start: 202110
  10. CRIZOTINIB [Suspect]
     Active Substance: CRIZOTINIB
     Indication: Lung adenocarcinoma
     Route: 065
     Dates: start: 202203, end: 202206
  11. CRIZOTINIB [Suspect]
     Active Substance: CRIZOTINIB
     Route: 065
     Dates: end: 202203
  12. CRIZOTINIB [Suspect]
     Active Substance: CRIZOTINIB
     Route: 065
  13. OSIMERTINIB [Suspect]
     Active Substance: OSIMERTINIB
     Indication: Lung adenocarcinoma
     Dosage: 40MG
     Route: 048
     Dates: start: 202009
  14. OSIMERTINIB [Suspect]
     Active Substance: OSIMERTINIB
     Indication: Gastrointestinal stromal tumour
     Dosage: 80MG
     Route: 048
     Dates: start: 202009
  15. OSIMERTINIB [Suspect]
     Active Substance: OSIMERTINIB
     Route: 048
     Dates: start: 202104
  16. AFATINIB [Suspect]
     Active Substance: AFATINIB
     Indication: Lung adenocarcinoma
     Route: 065
     Dates: start: 2020, end: 202009
  17. RADIATION THERAPY [Suspect]
     Active Substance: RADIATION THERAPY
     Indication: Gastrointestinal neoplasm
     Dates: start: 20210202, end: 20210216
  18. RADIATION THERAPY [Suspect]
     Active Substance: RADIATION THERAPY
     Indication: Metastases to lymph nodes

REACTIONS (7)
  - Blood creatine phosphokinase increased [Recovering/Resolving]
  - Renal failure [Recovering/Resolving]
  - Off label use [Unknown]
  - Drug resistance mutation [Unknown]
  - Drug interaction [Unknown]
  - Diarrhoea [Recovered/Resolved]
  - Overdose [Unknown]

NARRATIVE: CASE EVENT DATE: 20200101
